FAERS Safety Report 8463250 (Version 2)
Quarter: 2012Q4

REPORT INFORMATION
  Report Type: 
  Country: BR (occurrence: BR)
  Receive Date: 20120316
  Receipt Date: 20121221
  Transmission Date: 20130627
  Serious: Yes (Other)
  Sender: FDA-Public Use
  Company Number: BR-AMGEN-BRASP2012015442

PATIENT
  Age: 75 Year
  Sex: Male
  Weight: 82 kg

DRUGS (2)
  1. ENBREL [Suspect]
     Indication: ANKYLOSING SPONDYLITIS
     Dosage: 25 mg, 2x/week
     Route: 058
     Dates: start: 20100428, end: 201109
  2. ENBREL [Suspect]
     Dosage: 25 mg, 2x/week
     Route: 058
     Dates: end: 201202

REACTIONS (2)
  - Spinal column injury [Unknown]
  - Drug ineffective [Unknown]
